FAERS Safety Report 24373763 (Version 1)
Quarter: 2024Q3

REPORT INFORMATION
  Report Type: Spontaneous
  Country: US (occurrence: US)
  Receive Date: 20240927
  Receipt Date: 20240927
  Transmission Date: 20241017
  Serious: No
  Sender: VIVUS
  Company Number: US-VIVUS LLC-2023V1001127

PATIENT
  Sex: Female
  Weight: 77.18 kg

DRUGS (1)
  1. QSYMIA [Suspect]
     Active Substance: PHENTERMINE HYDROCHLORIDE\TOPIRAMATE
     Indication: Product used for unknown indication
     Route: 048
     Dates: start: 202306

REACTIONS (5)
  - Malnutrition [Unknown]
  - Hunger [Unknown]
  - Asthenia [Unknown]
  - Nausea [Unknown]
  - Inappropriate schedule of product administration [Unknown]
